FAERS Safety Report 4594008-3 (Version None)
Quarter: 2005Q1

REPORT INFORMATION
  Report Type: 
  Country: None (occurrence: None)
  Receive Date: 20050218
  Receipt Date: 20050209
  Transmission Date: 20050727
  Serious: Yes (Other)
  Sender: FDA-Public Use
  Company Number: 2005013633

PATIENT
  Age: 83 Year
  Sex: Male
  Weight: 55 kg

DRUGS (4)
  1. SULPERAZON (SULBACTAM, CEFOPERAZONE) [Suspect]
     Indication: CHOLANGITIS
     Dosage: 1 GRAM (1 D), INTRAVENOUS
     Route: 042
     Dates: start: 20041127, end: 20041130
  2. AMINOFLUID (AMINO ACIDS NOS, ELECTROLYTES NOS, GLUCOSE) [Concomitant]
  3. LIMAPROST (LIMAPROST) [Concomitant]
  4. TAMSULOSIN HYDROCHLORIDE (TAMSULOSIN HYDROCHLORIDE) [Concomitant]

REACTIONS (1)
  - PLATELET COUNT DECREASED [None]
